FAERS Safety Report 7489936-5 (Version None)
Quarter: 2011Q2

REPORT INFORMATION
  Report Type: 
  Country: None (occurrence: None)
  Receive Date: 20110519
  Receipt Date: 20110506
  Transmission Date: 20111010
  Serious: Yes (Hospitalization, Other)
  Sender: FDA-Public Use
  Company Number: US-BAYER-2010-001564

PATIENT
  Age: 17 Year
  Sex: Female
  Weight: 49.6 kg

DRUGS (21)
  1. ROCEPHIN [Concomitant]
     Dosage: 2 G, UNK
     Route: 042
  2. AMOXICILLIN [Concomitant]
     Dosage: UNK
     Route: 048
     Dates: start: 20071115, end: 20071130
  3. TOBRADEX [Concomitant]
  4. YAZ [Suspect]
     Indication: MENSTRUATION IRREGULAR
  5. CLINDAMYCIN PHOSPHATE [Concomitant]
     Dosage: UNK
     Route: 061
     Dates: start: 20061226, end: 20100911
  6. MIDRIN [Concomitant]
  7. PREVACID [Concomitant]
     Dosage: UNK
     Route: 048
  8. PRASCION CLEANSER [Concomitant]
     Dosage: UNK
     Route: 061
     Dates: start: 20061001, end: 20100911
  9. MELOXICAM [Concomitant]
     Dosage: UNK
     Route: 048
     Dates: start: 20071115, end: 20071215
  10. AUGMENTIN [Concomitant]
  11. TAZORAC [Concomitant]
     Dosage: UNK
     Route: 061
     Dates: start: 20041001, end: 20080901
  12. PREDNISONE [Concomitant]
     Dosage: UNK
     Route: 048
     Dates: start: 20071213, end: 20071219
  13. AMOXICILLIN AND CLAVULANATE POTASSIUM [Concomitant]
     Dosage: UNK
     Route: 048
     Dates: start: 20071115, end: 20071129
  14. GLYCOLAX [Concomitant]
     Dosage: UNK
     Route: 048
     Dates: start: 20071213
  15. YASMIN [Suspect]
     Indication: CONTRACEPTION
     Dosage: UNK
     Route: 048
     Dates: start: 20070430, end: 20071213
  16. YASMIN [Suspect]
     Indication: MENSTRUATION IRREGULAR
  17. SULFAMETHOXAZOLE [Concomitant]
     Dosage: UNK
     Route: 048
     Dates: start: 20071115, end: 20071130
  18. HISTINEX HC SYRUP [Concomitant]
     Dosage: UNK
     Route: 048
     Dates: start: 20071127, end: 20071130
  19. ACETAMINOPHEN AND HYDROCODONE BITARTRATE [Concomitant]
     Dosage: UNK
     Dates: start: 20071213, end: 20071218
  20. YAZ [Suspect]
     Indication: CONTRACEPTION
     Dosage: UNK
     Route: 048
     Dates: start: 20070127, end: 20070401
  21. FLUCONAZOLE [Concomitant]
     Dosage: UNK
     Route: 048
     Dates: start: 20071213, end: 20071218

REACTIONS (8)
  - EMOTIONAL DISTRESS [None]
  - MIGRAINE [None]
  - PAIN [None]
  - CHILLS [None]
  - ANXIETY [None]
  - FEAR OF DEATH [None]
  - CEREBROVASCULAR ACCIDENT [None]
  - TRANSVERSE SINUS THROMBOSIS [None]
